FAERS Safety Report 23798895 (Version 1)
Quarter: 2024Q2

REPORT INFORMATION
  Report Type: Spontaneous
  Country: US (occurrence: None)
  Receive Date: 20240427
  Receipt Date: 20240427
  Transmission Date: 20240716
  Serious: Yes (Hospitalization)
  Sender: FDA-Public Use
  Company Number: None

PATIENT
  Age: 63 Year
  Sex: Male

DRUGS (1)
  1. GUAIFENESIN 600 MG [Suspect]
     Active Substance: GUAIFENESIN
     Indication: Secretion discharge
     Dosage: FREQUENCY : DAILY;?
     Route: 048
     Dates: start: 20230127

REACTIONS (5)
  - Unresponsive to stimuli [None]
  - Toxic encephalopathy [None]
  - Dystonia [None]
  - Progressive supranuclear palsy [None]
  - Disease progression [None]

NARRATIVE: CASE EVENT DATE: 20230306
